FAERS Safety Report 16755745 (Version 2)
Quarter: 2020Q1

REPORT INFORMATION
  Report Type: Spontaneous
  Country: GB (occurrence: GB)
  Receive Date: 20190829
  Receipt Date: 20200218
  Transmission Date: 20200409
  Serious: Yes (Other)
  Sender: FDA-Public Use
  Company Number: GB-PFIZER INC-2019369079

PATIENT
  Age: 37 Year
  Sex: Female
  Weight: 70 kg

DRUGS (3)
  1. FLUOROURACIL. [Suspect]
     Active Substance: FLUOROURACIL
     Dosage: 4450 MG (2400MG/M2) INFUSION OVER 48 HOURS
     Route: 042
     Dates: start: 20190528, end: 20190711
  2. OXALIPLATIN. [Suspect]
     Active Substance: OXALIPLATIN
     Indication: COLORECTAL CANCER METASTATIC
     Dosage: 150 MG (85MG/M2)
     Route: 042
     Dates: start: 20190528, end: 20190709
  3. FLUOROURACIL. [Suspect]
     Active Substance: FLUOROURACIL
     Indication: COLORECTAL CANCER METASTATIC
     Dosage: 700 MG (400MG/M2) BOLUS
     Route: 042
     Dates: start: 20190528, end: 20190711

REACTIONS (4)
  - Stillbirth [Unknown]
  - Maternal exposure during pregnancy [Unknown]
  - Foetal death [Unknown]
  - Neonatal asphyxia [Unknown]

NARRATIVE: CASE EVENT DATE: 20190722
